FAERS Safety Report 15017859 (Version 2)
Quarter: 2018Q2

REPORT INFORMATION
  Report Type: Spontaneous
  Country: TH (occurrence: TH)
  Receive Date: 20180615
  Receipt Date: 20180615
  Transmission Date: 20180711
  Serious: Yes (Other)
  Sender: FDA-Public Use
  Company Number: PHHY2018TH020310

PATIENT
  Age: 63 Year
  Sex: Female

DRUGS (12)
  1. PREDNISOLONE. [Concomitant]
     Active Substance: PREDNISOLONE
     Indication: PRODUCT USED FOR UNKNOWN INDICATION
     Dosage: UNK UNK, Q2H
     Route: 047
  2. MOXIFLOXACIN. [Suspect]
     Active Substance: MOXIFLOXACIN
     Indication: PRODUCT USED FOR UNKNOWN INDICATION
     Dosage: UNK UNK, QID
     Route: 047
  3. TOBRAMYCIN AND DEXAMETHASONE [Suspect]
     Active Substance: DEXAMETHASONE\TOBRAMYCIN
     Indication: PRODUCT USED FOR UNKNOWN INDICATION
     Dosage: QHS (EO)
     Route: 047
  4. BRINZOLAMIDE [Suspect]
     Active Substance: BRINZOLAMIDE
     Indication: GLAUCOMA
     Dosage: UNK UNK, TID
     Route: 047
  5. ACETAZOLAMIDE. [Concomitant]
     Active Substance: ACETAZOLAMIDE
     Indication: PRODUCT USED FOR UNKNOWN INDICATION
     Dosage: 1/2 TABLET TID (PC)
     Route: 048
  6. TIMOLOL. [Suspect]
     Active Substance: TIMOLOL
     Indication: GLAUCOMA
     Dosage: UNK UNK, BID
     Route: 047
  7. BRINZOLAMIDE/BRIMONIDINE [Suspect]
     Active Substance: BRIMONIDINE TARTRATE\BRINZOLAMIDE
     Indication: GLAUCOMA
     Dosage: UNK UNK, TID
     Route: 047
  8. SODIUM HYALURONATE [Concomitant]
     Active Substance: HYALURONATE SODIUM
     Indication: PRODUCT USED FOR UNKNOWN INDICATION
     Dosage: UNK UNK, QID
     Route: 047
  9. TIMOLOL. [Suspect]
     Active Substance: TIMOLOL
     Dosage: UNK
     Route: 047
  10. BRIMONIDINE [Suspect]
     Active Substance: BRIMONIDINE TARTRATE
     Indication: GLAUCOMA
     Dosage: UNK UNK, BID
     Route: 047
  11. BIMATOPROST. [Concomitant]
     Active Substance: BIMATOPROST
     Indication: PRODUCT USED FOR UNKNOWN INDICATION
     Dosage: UNK UNK, QHS
     Route: 047
  12. ACETAZOLAMIDE. [Concomitant]
     Active Substance: ACETAZOLAMIDE
     Dosage: 1 DF, BID
     Route: 048

REACTIONS (11)
  - Angle closure glaucoma [Unknown]
  - Corneal epithelial microcysts [Unknown]
  - Intraocular pressure increased [Unknown]
  - Optic nerve cup/disc ratio increased [Unknown]
  - Dry eye [Unknown]
  - Visual acuity reduced [Unknown]
  - Off label use [Unknown]
  - Iris adhesions [Unknown]
  - Punctate keratitis [Unknown]
  - Prostaglandin analogue periorbitopathy [Unknown]
  - Flat anterior chamber of eye [Unknown]
